FAERS Safety Report 6358353-3 (Version None)
Quarter: 2009Q3

REPORT INFORMATION
  Report Type: 
  Country: None (occurrence: None)
  Receive Date: 20090911
  Receipt Date: 20090827
  Transmission Date: 20100115
  Serious: Yes (Life-Threatening)
  Sender: FDA-Public Use
  Company Number: DSJ-2009-10643

PATIENT
  Age: 70 Year
  Sex: Male
  Weight: 45 kg

DRUGS (16)
  1. OLMESARTAN MEDOXOMIL [Suspect]
     Indication: HYPERTENSION
     Dosage: 10 MG (10 MG,1 IN 1 D),PER ORAL
     Route: 048
     Dates: start: 20090716, end: 20090813
  2. PHENOBAL (PHENOBARBITAL) (ORAL POWDER) (PHENOBARBITAL) [Suspect]
     Indication: CEREBRAL HAEMATOMA
     Dosage: 120 MG (40 MG,3 IN 1 D),PER ORAL
     Route: 048
     Dates: start: 20090712, end: 20090811
  3. PHENOBAL (PHENOBARBITAL) (ORAL POWDER) (PHENOBARBITAL) [Suspect]
     Indication: CEREBRAL HAEMORRHAGE
     Dosage: 120 MG (40 MG,3 IN 1 D),PER ORAL
     Route: 048
     Dates: start: 20090712, end: 20090811
  4. PHENOBAL (PHENOBARBITAL) (ORAL POWDER) (PHENOBARBITAL) [Suspect]
     Indication: SUBARACHNOID HAEMORRHAGE
     Dosage: 120 MG (40 MG,3 IN 1 D),PER ORAL
     Route: 048
     Dates: start: 20090712, end: 20090811
  5. CONIEL (BENIDIPINE HYDROCHLORIDE) (TABLET) (BENIDIPINE HYDROCHLORIDE) [Suspect]
     Indication: HYPERTENSION
     Dosage: 8 MG (4 MG,2 IN 1 D),PER ORAL
     Route: 048
     Dates: start: 20090721, end: 20090814
  6. GLUCONSAN K (POTASSIUM GLUCONATE) (TABLET) (POTASSIUM GLUCONATE) [Concomitant]
  7. SODIUM CHLORIDE (SODIUM CHLORIDE) (ORAL POWDER) (SODIUM CHLORIDE) [Concomitant]
  8. BIOFERMIN (LACTOBACILLUS ACIDOPHILUS, BACILLUS SUBTILIS, STREPTOCOCCUS [Concomitant]
  9. ZANTAC (RANITIDINE HYDROCHLORIDE) (INJECTION) (RANITIDINE HYDROCHLORID [Concomitant]
  10. NICARDPINE (NICARDIPINE HYDROCHLORIDE) (INJECTION) (NICARDIPINE HYDROC [Concomitant]
  11. TAIPERACILIN (PIPERACILLIN SODIUM) (INJECTION) (PIPERACILLIN SODIUM) [Concomitant]
  12. GASTER (FAMOTIDINE) (INJECTION) (FAMOTIDINE) [Concomitant]
  13. CEFTAZIDIME (CEFTAZIDIME) (INJECTION) (CEFTAZIDIME) [Concomitant]
  14. MIDOCIN (CLINDAMYCIN) (INJECTION) (CLINDAMYCIN) [Concomitant]
  15. PIRETAZOL (CEFMETAZOLE SODIUM) (INJECTION) (CEFMETAZOLE SODIUM) [Concomitant]
  16. CIPROXAN (CIPROFLOXACIN HYDROCHLORIDE) (INJECTION) (CIPROFLOXACIN HYDR [Concomitant]

REACTIONS (2)
  - STEVENS-JOHNSON SYNDROME [None]
  - TOXIC EPIDERMAL NECROLYSIS [None]
